FAERS Safety Report 4837091-X (Version None)
Quarter: 2005Q4

REPORT INFORMATION
  Report Type: 
  Country: None (occurrence: None)
  Receive Date: 20051121
  Receipt Date: 20051121
  Transmission Date: 20060501
  Serious: Yes (Death)
  Sender: FDA-Public Use
  Company Number: None

PATIENT
  Age: 48 Year
  Sex: Female
  Weight: 41 kg

DRUGS (11)
  1. GAMMAR-P I.V. [Suspect]
     Indication: THROMBOCYTOPENIA
     Dosage: 16 GM IV DAILY
     Route: 042
     Dates: start: 20051111
  2. GAMMAR-P I.V. [Suspect]
     Indication: THROMBOCYTOPENIA
     Dosage: 16 GM IV DAILY
     Route: 042
     Dates: start: 20051112
  3. DUONEB [Concomitant]
  4. PROTONIX [Concomitant]
  5. DIFLUCAN [Concomitant]
  6. MORPHINE [Concomitant]
  7. CARDIZEM CD [Concomitant]
  8. ZOSYN [Concomitant]
  9. LEVAQUIN [Concomitant]
  10. HYDRROCORTISONE [Concomitant]
  11. POTASSIUM CHLORIDE [Concomitant]

REACTIONS (2)
  - CARDIAC ARREST [None]
  - EMBOLISM [None]
